FAERS Safety Report 16781488 (Version 1)
Quarter: 2019Q3

REPORT INFORMATION
  Report Type: Spontaneous
  Country: CA (occurrence: CA)
  Receive Date: 20190906
  Receipt Date: 20190906
  Transmission Date: 20191005
  Serious: Yes (Life-Threatening)
  Sender: FDA-Public Use
  Company Number: CA-PFIZER INC-2019386750

PATIENT
  Age: 10 Year
  Sex: Male
  Weight: 34 kg

DRUGS (4)
  1. SEVOFLURANE. [Concomitant]
     Active Substance: SEVOFLURANE
     Dosage: UNK
  2. FENTANYL. [Concomitant]
     Active Substance: FENTANYL
     Dosage: UNK
  3. PROPOFOL. [Concomitant]
     Active Substance: PROPOFOL
     Dosage: UNK
  4. ROCURONIUM BROMIDE. [Suspect]
     Active Substance: ROCURONIUM BROMIDE
     Indication: INDUCTION OF ANAESTHESIA
     Dosage: 1 MG/KG, SINGLE
     Route: 042

REACTIONS (4)
  - Rash [Recovering/Resolving]
  - Anaphylactic shock [Recovering/Resolving]
  - Hypotension [Recovering/Resolving]
  - Obstructive airways disorder [Recovering/Resolving]
